FAERS Safety Report 10277527 (Version 2)
Quarter: 2014Q3

REPORT INFORMATION
  Report Type: Spontaneous
  Country: FR (occurrence: FR)
  Receive Date: 20140703
  Receipt Date: 20140703
  Transmission Date: 20150326
  Serious: Yes (Hospitalization, Other)
  Sender: FDA-Public Use
  Company Number: FR-RECKITT BENCKISER PHARMACEUTICAL, INC-RB-68532-2014

PATIENT
  Age: 32 Year
  Sex: Male

DRUGS (5)
  1. SUBUTEX [Suspect]
     Active Substance: BUPRENORPHINE HYDROCHLORIDE
     Dosage: UNSPECIFIED UNIT DOSE STRENGTH; CUTTING
     Route: 060
     Dates: start: 201404, end: 20140508
  2. SUBUTEX [Suspect]
     Active Substance: BUPRENORPHINE HYDROCHLORIDE
     Dosage: UNSPECIFIED UNIT DOSE STRENGTH
     Route: 065
     Dates: start: 20140513
  3. SUBUTEX [Suspect]
     Active Substance: BUPRENORPHINE HYDROCHLORIDE
     Indication: DRUG DEPENDENCE
     Dosage: UNSPECIFIED UNIT DOSE STRENGTH; CUTTING
     Route: 060
     Dates: start: 2008, end: 201404
  4. TOBACCO [Concomitant]
     Active Substance: TOBACCO LEAF
     Indication: PRODUCT USED FOR UNKNOWN INDICATION
     Dosage: 7.5 PACK A YEAR (10 CIGARETTES DAILY FROM 15 YEARS)
     Route: 055
  5. ALCOHOL. [Suspect]
     Active Substance: ALCOHOL
     Indication: PRODUCT USED FOR UNKNOWN INDICATION
     Dosage: UNKNOWN DAILY DOSING
     Route: 048

REACTIONS (7)
  - Macrocytosis [None]
  - Gamma-glutamyltransferase increased [None]
  - Iatrogenic injury [None]
  - Wrong technique in drug usage process [Recovered/Resolved]
  - Intentional product misuse [None]
  - Pancreatitis acute [Recovered/Resolved]
  - Alcohol abuse [Unknown]

NARRATIVE: CASE EVENT DATE: 2008
